FAERS Safety Report 18609594 (Version 1)
Quarter: 2020Q4

REPORT INFORMATION
  Report Type: Spontaneous
  Country: US (occurrence: US)
  Receive Date: 20201214
  Receipt Date: 20201214
  Transmission Date: 20210114
  Serious: Yes (Other)
  Sender: FDA-Public Use
  Company Number: US-GLENMARK PHARMACEUTICALS-2020GMK050103

PATIENT

DRUGS (1)
  1. NITROGLYCERIN. [Suspect]
     Active Substance: NITROGLYCERIN
     Indication: ANGINA PECTORIS
     Dosage: UNK
     Route: 065

REACTIONS (5)
  - Product administration error [Unknown]
  - Product colour issue [Unknown]
  - Burning sensation [Unknown]
  - Drug ineffective [Unknown]
  - Feeling abnormal [Unknown]
